FAERS Safety Report 21826655 (Version 1)
Quarter: 2023Q1

REPORT INFORMATION
  Report Type: Report from Study
  Country: AU (occurrence: AU)
  Receive Date: 20230106
  Receipt Date: 20230106
  Transmission Date: 20230418
  Serious: Yes (Hospitalization)
  Sender: FDA-Public Use
  Company Number: AU-ABBVIE-4257821

PATIENT
  Sex: Male

DRUGS (2)
  1. CARBIDOPA\LEVODOPA [Suspect]
     Active Substance: CARBIDOPA\LEVODOPA
     Indication: Parkinson^s disease
     Dosage: PATIENT WAS ON ABBVIE J FOR 20 FR PEG
     Route: 050
     Dates: start: 20221003
  2. CARBIDOPA\LEVODOPA [Suspect]
     Active Substance: CARBIDOPA\LEVODOPA
     Dosage: PATIENT WAS ON ABBVIE PEG FOR 20 FR
     Route: 050
     Dates: start: 20221003

REACTIONS (2)
  - Lower respiratory tract infection [Unknown]
  - Stoma site infection [Unknown]
